FAERS Safety Report 9499104 (Version 2)
Quarter: 2013Q3

REPORT INFORMATION
  Report Type: Report from Study
  Country: US (occurrence: US)
  Receive Date: 20130904
  Receipt Date: 20130904
  Transmission Date: 20140515
  Serious: Yes (Hospitalization)
  Sender: FDA-Public Use
  Company Number: US-ROCHE-1256273

PATIENT
  Age: 80 Year
  Sex: Male

DRUGS (9)
  1. ERIVEDGE [Suspect]
     Indication: BASAL CELL CARCINOMA
     Dosage: IN THE MORNING
     Route: 048
     Dates: start: 20130719, end: 20130810
  2. AZOPT [Concomitant]
     Indication: GLAUCOMA
     Route: 047
  3. ASPIRIN [Concomitant]
     Route: 048
  4. TOPROL XL [Concomitant]
     Indication: BLOOD PRESSURE
     Route: 048
  5. XANAX [Concomitant]
     Indication: ANXIETY
     Route: 048
  6. ZOCOR [Concomitant]
     Indication: BLOOD CHOLESTEROL
     Route: 048
  7. PROTONIX (UNITED STATES) [Concomitant]
     Indication: GASTROOESOPHAGEAL REFLUX DISEASE
     Route: 048
  8. PEPCID AC [Concomitant]
     Indication: GASTROOESOPHAGEAL REFLUX DISEASE
     Route: 048
  9. LIQUID NITROGEN [Concomitant]
     Indication: BASAL CELL CARCINOMA

REACTIONS (6)
  - Fatigue [Recovered/Resolved]
  - Muscle spasms [Not Recovered/Not Resolved]
  - Insomnia [Not Recovered/Not Resolved]
  - Abdominal pain [Recovering/Resolving]
  - Gastrointestinal pain [Recovering/Resolving]
  - Fear [Recovering/Resolving]
